FAERS Safety Report 4794450-1 (Version None)
Quarter: 2005Q4

REPORT INFORMATION
  Report Type: 
  Country: None (occurrence: None)
  Receive Date: 20051011
  Receipt Date: 20050929
  Transmission Date: 20060501
  Serious: Yes (Life-Threatening, Hospitalization)
  Sender: FDA-Public Use
  Company Number: ZA-BRISTOL-MYERS SQUIBB COMPANY-13137468

PATIENT
  Age: 36 Year
  Sex: Male

DRUGS (3)
  1. STOCRIN TABS [Suspect]
     Indication: HIV INFECTION
     Route: 048
     Dates: end: 20050901
  2. STAVUDINE [Concomitant]
  3. LAMIVUDINE [Concomitant]

REACTIONS (1)
  - HAEMOLYSIS [None]
